FAERS Safety Report 20007064 (Version 1)
Quarter: 2021Q4

REPORT INFORMATION
  Report Type: Spontaneous
  Country: US (occurrence: US)
  Receive Date: 20211028
  Receipt Date: 20211028
  Transmission Date: 20220303
  Serious: Yes (Other)
  Sender: FDA-Public Use
  Company Number: US-ACCORD-243786

PATIENT
  Age: 5 Year
  Sex: Female

DRUGS (2)
  1. CARBOPLATIN [Suspect]
     Active Substance: CARBOPLATIN
     Indication: Metastatic neoplasm
     Dosage: THREE TANDEM CYCLES
  2. THIOTEPA [Suspect]
     Active Substance: THIOTEPA
     Indication: Metastatic neoplasm
     Dosage: THREE TANDEM CYCLES

REACTIONS (1)
  - Pulmonary arterial hypertension [Recovered/Resolved]
